FAERS Safety Report 25274351 (Version 3)
Quarter: 2025Q3

REPORT INFORMATION
  Report Type: Report from Study
  Country: US (occurrence: US)
  Receive Date: 20250506
  Receipt Date: 20250827
  Transmission Date: 20251021
  Serious: Yes (Hospitalization, Other)
  Sender: ABBVIE
  Company Number: US-ABBVIE-5893719

PATIENT
  Age: 68 Year
  Sex: Female

DRUGS (1)
  1. SKYRIZI [Suspect]
     Active Substance: RISANKIZUMAB-RZAA
     Indication: Psoriasis
     Route: 058
     Dates: start: 20230425

REACTIONS (6)
  - Clostridium difficile infection [Recovered/Resolved]
  - Parkinson^s disease [Not Recovered/Not Resolved]
  - Psoriasis [Unknown]
  - Nausea [Not Recovered/Not Resolved]
  - Precancerous condition [Unknown]
  - Polyp [Unknown]

NARRATIVE: CASE EVENT DATE: 20240701
